FAERS Safety Report 5564865-2 (Version None)
Quarter: 2007Q4

REPORT INFORMATION
  Report Type: 
  Country: None (occurrence: None)
  Receive Date: 20071213
  Receipt Date: 20071213
  Transmission Date: 20080405
  Serious: Yes (Life-Threatening, Hospitalization)
  Sender: FDA-Public Use
  Company Number: None

PATIENT
  Sex: Male
  Weight: 79 kg

DRUGS (2)
  1. PRIMAXIN [Suspect]
     Indication: PNEUMONIA
     Dosage: 250 MG EVERY 6 HRS IV   4 DOSES
     Route: 042
     Dates: start: 20071117, end: 20071118
  2. PRIMAXIN [Suspect]
     Indication: SEPSIS
     Dosage: 500 MG EVERY 12 HRS IV   4 DOSES
     Route: 042
     Dates: start: 20071121, end: 20071123

REACTIONS (6)
  - C-REACTIVE PROTEIN INCREASED [None]
  - DRUG INTERACTION [None]
  - MULTI-ORGAN DISORDER [None]
  - RENAL IMPAIRMENT [None]
  - SHIFT TO THE LEFT [None]
  - TOXIC EPIDERMAL NECROLYSIS [None]
